FAERS Safety Report 19093021 (Version 2)
Quarter: 2021Q2

REPORT INFORMATION
  Report Type: Report from Study
  Country: US (occurrence: US)
  Receive Date: 20210405
  Receipt Date: 20210406
  Transmission Date: 20210717
  Serious: Yes (Death, Other)
  Sender: FDA-Public Use
  Company Number: US-PFIZER INC-2021359454

PATIENT
  Age: 61 Year
  Sex: Male

DRUGS (6)
  1. AMPICILLIN [Concomitant]
     Active Substance: AMPICILLIN
  2. ISORDIL [Concomitant]
     Active Substance: ISOSORBIDE DINITRATE
  3. CIMETIDINE [Concomitant]
     Active Substance: CIMETIDINE
  4. FUROSEMIDE. [Concomitant]
     Active Substance: FUROSEMIDE
  5. MINOXIDIL. [Suspect]
     Active Substance: MINOXIDIL
     Dosage: UNK
  6. CLONIDINE. [Concomitant]
     Active Substance: CLONIDINE

REACTIONS (5)
  - Cardiac disorder [Fatal]
  - Coronary artery thrombosis [Fatal]
  - Myocarditis [Fatal]
  - Cardio-respiratory arrest [Fatal]
  - Arteriosclerosis coronary artery [Fatal]
